FAERS Safety Report 5946931-2 (Version None)
Quarter: 2008Q4

REPORT INFORMATION
  Report Type: 
  Country: None (occurrence: None)
  Receive Date: 20081107
  Receipt Date: 20081107
  Transmission Date: 20090506
  Serious: Yes (Disabling)
  Sender: FDA-Public Use
  Company Number: None

PATIENT
  Sex: Female
  Weight: 63 kg

DRUGS (1)
  1. REMICADE [Suspect]
     Indication: RHEUMATOID ARTHRITIS
     Dosage: 4MG/KG EVERY 8 WEEKS IV DRIP
     Route: 041
     Dates: start: 20021029, end: 20080923

REACTIONS (5)
  - LUNG CANCER METASTATIC [None]
  - MENINGIOMA [None]
  - METASTASES TO BONE [None]
  - METASTASES TO CENTRAL NERVOUS SYSTEM [None]
  - NEUROENDOCRINE CARCINOMA [None]
